FAERS Safety Report 15005143 (Version 1)
Quarter: 2018Q2

REPORT INFORMATION
  Report Type: Spontaneous
  Country: BR (occurrence: BR)
  Receive Date: 20180613
  Receipt Date: 20180613
  Transmission Date: 20180711
  Serious: Yes (Hospitalization)
  Sender: FDA-Public Use
  Company Number: BR-GLAXOSMITHKLINE-BR2018GSK103224

PATIENT
  Sex: Male
  Weight: 12 kg

DRUGS (10)
  1. CLAVULIN BD [Suspect]
     Active Substance: AMOXICILLIN\CLAVULANATE POTASSIUM
     Indication: BRONCHIOLITIS
     Dosage: 3.75 ML, QD
     Route: 048
     Dates: start: 20160212, end: 20180319
  2. PREDNISOLONE. [Suspect]
     Active Substance: PREDNISOLONE
     Indication: BRONCHIOLITIS
     Dosage: 4 ML, QD
     Route: 048
     Dates: start: 20180528, end: 20180530
  3. CLAVULIN BD [Suspect]
     Active Substance: AMOXICILLIN\CLAVULANATE POTASSIUM
     Dosage: 2.5 ML, BID
     Route: 048
     Dates: start: 20170303, end: 20170310
  4. ACEBROFILINA [Suspect]
     Active Substance: AMBROXOL ACEFYLLINATE
     Indication: BRONCHIOLITIS
     Dosage: 5 ML, BID
     Route: 048
     Dates: start: 20180528, end: 20180530
  5. SERETIDE [Suspect]
     Active Substance: FLUTICASONE PROPIONATE\SALMETEROL XINAFOATE
     Indication: BRONCHIOLITIS
     Dosage: 2 DF, QD, APPLICATION(S
  6. AEROLIN [Suspect]
     Active Substance: ALBUTEROL
     Indication: BRONCHIOLITIS
     Dosage: 2 DF, QD, APPLICATION(S)
     Route: 055
  7. BEROTEC [Suspect]
     Active Substance: FENOTEROL HYDROBROMIDE
     Indication: BRONCHIOLITIS
     Dosage: 4 DF, QID, APPLICATION(S)
     Route: 048
     Dates: start: 20180528, end: 20180530
  8. MONTELAIR (MONTELUKAST) [Suspect]
     Active Substance: MONTELUKAST SODIUM
     Indication: BRONCHIOLITIS
     Dosage: 1 DF, QD, SACHET
     Route: 048
     Dates: start: 20180601
  9. DESLORATADINE. [Suspect]
     Active Substance: DESLORATADINE
     Indication: BRONCHIOLITIS
     Dosage: 3 ML, QD
     Route: 048
     Dates: start: 20180528, end: 20180530
  10. ATROVENT [Suspect]
     Active Substance: IPRATROPIUM BROMIDE
     Indication: BRONCHIOLITIS
     Dosage: 4 DF, QID,APPLICATION(S)
     Route: 048
     Dates: start: 20180528, end: 20180530

REACTIONS (5)
  - Cough [Unknown]
  - Wheezing [Unknown]
  - Fatigue [Unknown]
  - Product use in unapproved indication [Unknown]
  - Drug prescribing error [Recovered/Resolved]
